FAERS Safety Report 10784754 (Version 1)
Quarter: 2015Q1

REPORT INFORMATION
  Report Type: Spontaneous
  Country: TR (occurrence: None)
  Receive Date: 20150209
  Receipt Date: 20150209
  Transmission Date: 20150721
  Serious: Yes (Other)
  Sender: FDA-Public Use
  Company Number: FK201500606

PATIENT
  Age: 71 Year
  Sex: Male

DRUGS (2)
  1. DOCETAXEL (MANUFACTURER UNKNOWN) (DOCETAXEL) (DOCETAXEL) [Suspect]
     Active Substance: DOCETAXEL
     Indication: ADENOSQUAMOUS CELL LUNG CANCER
  2. CISPLATIN (MANUFACTURER UNKNOWN) (CISPLATIN) (CISPLATIN) [Suspect]
     Active Substance: CISPLATIN
     Indication: ADENOSQUAMOUS CELL LUNG CANCER

REACTIONS (4)
  - Computerised tomogram abdomen abnormal [None]
  - Kaposi^s sarcoma [None]
  - Adverse drug reaction [None]
  - Lymphangioma [None]
